FAERS Safety Report 9391070 (Version 1)
Quarter: 2013Q3

REPORT INFORMATION
  Report Type: Spontaneous
  Country: DE (occurrence: DE)
  Receive Date: 20130709
  Receipt Date: 20130709
  Transmission Date: 20140515
  Serious: Yes (Other)
  Sender: FDA-Public Use
  Company Number: DE-PFIZER INC-2013199887

PATIENT
  Sex: Male

DRUGS (1)
  1. LYRICA [Suspect]

REACTIONS (12)
  - Suicidal ideation [Unknown]
  - Depression [Unknown]
  - Quality of life decreased [Unknown]
  - Dysgraphia [Unknown]
  - Aphasia [Unknown]
  - Somnolence [Unknown]
  - Balance disorder [Unknown]
  - Weight increased [Unknown]
  - Feeling drunk [Unknown]
  - Gait disturbance [Unknown]
  - Fatigue [Unknown]
  - Erectile dysfunction [Unknown]
